FAERS Safety Report 21338621 (Version 4)
Quarter: 2022Q4

REPORT INFORMATION
  Report Type: Report from Study
  Country: CA (occurrence: CA)
  Receive Date: 20220915
  Receipt Date: 20221019
  Transmission Date: 20230112
  Serious: Yes (Other)
  Sender: FDA-Public Use
  Company Number: CA-GILEAD-2022-0592966

PATIENT
  Age: 31 Year
  Sex: Female

DRUGS (14)
  1. SACITUZUMAB GOVITECAN [Suspect]
     Active Substance: SACITUZUMAB GOVITECAN
     Indication: Triple negative breast cancer
     Dosage: 480 MG
     Route: 042
     Dates: start: 20220808
  2. SACITUZUMAB GOVITECAN [Suspect]
     Active Substance: SACITUZUMAB GOVITECAN
     Dosage: 320 MG (DOSE AT 5 MG/KG)
     Route: 042
     Dates: start: 20220913, end: 20220920
  3. DOXORUBICIN [Concomitant]
     Active Substance: DOXORUBICIN
  4. CYCLOPHOSPHAMIDE [Concomitant]
     Active Substance: CYCLOPHOSPHAMIDE
  5. ATEZOLIZUMAB [Concomitant]
     Active Substance: ATEZOLIZUMAB
  6. ABRAXANE [Concomitant]
     Active Substance: PACLITAXEL
  7. CARBOPLATIN [Concomitant]
     Active Substance: CARBOPLATIN
  8. CAPECITABINE [Concomitant]
     Active Substance: CAPECITABINE
  9. OLAPARIB [Concomitant]
     Active Substance: OLAPARIB
  10. DIPHENHYDRAMINE [Concomitant]
     Active Substance: DIPHENHYDRAMINE
     Dosage: 25 MG PIV (PRE-MEDICATION PRIOR TRODELVY)
  11. DIPHENHYDRAMINE [Concomitant]
     Active Substance: DIPHENHYDRAMINE
     Dosage: 25 MG PO (PRE-MEDICATION PRIOR TO TRODELVY)
     Route: 048
  12. DIPHENHYDRAMINE [Concomitant]
     Active Substance: DIPHENHYDRAMINE
     Dosage: 25 MG PO (PRE-MEDICATION PRIOR TO TRODELVY)
  13. DIPHENHYDRAMINE [Concomitant]
     Active Substance: DIPHENHYDRAMINE
     Dosage: 25 MG PO (PRE-MEDICATION PRIOR TO TRODELVY)
  14. ORAPAIN [Concomitant]

REACTIONS (17)
  - Neutrophil count decreased [Not Recovered/Not Resolved]
  - Neutropenia [Unknown]
  - Brain oedema [Unknown]
  - Weight fluctuation [Unknown]
  - Full blood count decreased [Unknown]
  - Platelet count decreased [Unknown]
  - Headache [Unknown]
  - Pulmonary pain [Unknown]
  - Cough [Unknown]
  - Vascular access site complication [Unknown]
  - Hypertension [Unknown]
  - Heart rate increased [Unknown]
  - Blood pressure systolic [Unknown]
  - Blood pressure diastolic increased [Unknown]
  - Condition aggravated [Unknown]
  - Inappropriate schedule of product administration [Unknown]
  - Off label use [Unknown]

NARRATIVE: CASE EVENT DATE: 20220801
